FAERS Safety Report 4824660-6 (Version None)
Quarter: 2005Q4

REPORT INFORMATION
  Report Type: 
  Country: None (occurrence: None)
  Receive Date: 20051108
  Receipt Date: 20051027
  Transmission Date: 20060501
  Serious: Yes (Disabling, Other)
  Sender: FDA-Public Use
  Company Number: 2005148941

PATIENT
  Age: 53 Year
  Sex: Female
  Weight: 61.5 kg

DRUGS (1)
  1. GENOTROPIN [Suspect]
     Indication: HYPOPITUITARISM
     Dosage: 0.2 MG (0.2 MG, 1 IN 1 D), UNKNOWN
     Route: 065
     Dates: start: 19950101, end: 20051004

REACTIONS (2)
  - BASAL CELL CARCINOMA [None]
  - PRURITUS [None]
